FAERS Safety Report 14943472 (Version 3)
Quarter: 2018Q3

REPORT INFORMATION
  Report Type: Report from Study
  Country: None (occurrence: US)
  Receive Date: 20180528
  Receipt Date: 20180704
  Transmission Date: 20181010
  Serious: Yes (Other)
  Sender: FDA-Public Use
  Company Number: US-ABBVIE-18K-163-2367025-00

PATIENT
  Age: 61 Year
  Sex: Female
  Weight: 93.07 kg

DRUGS (8)
  1. LIPITOR [Concomitant]
     Active Substance: ATORVASTATIN CALCIUM
     Indication: BLOOD CHOLESTEROL INCREASED
  2. SYNTHROID [Concomitant]
     Active Substance: LEVOTHYROXINE SODIUM
     Indication: HYPOTHYROIDISM
  3. HUMIRA [Suspect]
     Active Substance: ADALIMUMAB
     Indication: RHEUMATOID ARTHRITIS
     Route: 058
     Dates: start: 20171110, end: 20180305
  4. HUMIRA [Suspect]
     Active Substance: ADALIMUMAB
     Route: 058
     Dates: start: 201804
  5. METHOTREXATE. [Concomitant]
     Active Substance: METHOTREXATE
     Indication: RHEUMATOID ARTHRITIS
  6. FOLIC ACID. [Concomitant]
     Active Substance: FOLIC ACID
     Indication: RHEUMATOID ARTHRITIS
  7. CYTOMEL [Concomitant]
     Active Substance: LIOTHYRONINE SODIUM
     Indication: HYPOTHYROIDISM
  8. HYDROCHLOROTHIAZIDE. [Concomitant]
     Active Substance: HYDROCHLOROTHIAZIDE
     Indication: HYPERTENSION

REACTIONS (14)
  - Hypoacusis [Recovering/Resolving]
  - Influenza [Recovered/Resolved]
  - Sinusitis [Recovered/Resolved]
  - Immunodeficiency [Not Recovered/Not Resolved]
  - Tympanic membrane perforation [Recovering/Resolving]
  - Tinnitus [Recovering/Resolving]
  - Sinus congestion [Unknown]
  - Ear discomfort [Recovered/Resolved]
  - Tympanic membrane disorder [Recovered/Resolved]
  - Middle ear effusion [Not Recovered/Not Resolved]
  - Ear infection [Recovered/Resolved]
  - Nasopharyngitis [Recovered/Resolved]
  - Ear discomfort [Not Recovered/Not Resolved]
  - Ear haemorrhage [Recovered/Resolved]

NARRATIVE: CASE EVENT DATE: 2018
